FAERS Safety Report 6691475-6 (Version None)
Quarter: 2010Q2

REPORT INFORMATION
  Report Type: 
  Country: None (occurrence: None)
  Receive Date: 20100422
  Receipt Date: 20100415
  Transmission Date: 20101027
  Serious: Yes (Other)
  Sender: FDA-Public Use
  Company Number: US-JNJCH-2010009388

PATIENT
  Age: 5 Year
  Sex: Male
  Weight: 18.1 kg

DRUGS (1)
  1. ZYRTEC [Suspect]
     Indication: DRUG USE FOR UNKNOWN INDICATION
     Dosage: TEXT:1.5 TEASPOONFULS ONCE A DAY
     Route: 048

REACTIONS (5)
  - ABNORMAL BEHAVIOUR [None]
  - CHOKING [None]
  - OVERDOSE [None]
  - SOMNOLENCE [None]
  - VOMITING [None]
